FAERS Safety Report 6621101-3 (Version None)
Quarter: 2010Q1

REPORT INFORMATION
  Report Type: 
  Country: None (occurrence: None)
  Receive Date: 20100309
  Receipt Date: 20100226
  Transmission Date: 20100710
  Serious: Yes (Hospitalization)
  Sender: FDA-Public Use
  Company Number: Z0002930A

PATIENT
  Sex: Male
  Weight: 50 kg

DRUGS (6)
  1. PAZOPANIB [Suspect]
     Indication: NON-SMALL CELL LUNG CANCER
     Dosage: 800MG PER DAY
     Route: 048
     Dates: start: 20091105
  2. PEMETREXED [Suspect]
     Indication: NON-SMALL CELL LUNG CANCER
     Dosage: 500MGM2 CYCLIC
     Route: 042
     Dates: start: 20091105
  3. LORAZEPAM [Concomitant]
     Indication: PROPHYLAXIS
     Dosage: 1MG PER DAY
     Route: 048
     Dates: start: 20100118, end: 20100120
  4. OMEPRAZOL [Concomitant]
     Indication: PROPHYLAXIS
     Dosage: 20MG PER DAY
     Route: 048
     Dates: start: 20100118, end: 20100120
  5. PARACETAMOL [Concomitant]
     Indication: PAIN PROPHYLAXIS
     Dosage: 1G AS REQUIRED
     Route: 042
     Dates: start: 20100118, end: 20100120
  6. ENALAPRIL MALEATE [Concomitant]
     Indication: HYPERTENSION
     Dosage: 5MG PER DAY
     Route: 048

REACTIONS (1)
  - FEBRILE NEUTROPENIA [None]
